FAERS Safety Report 9975464 (Version 1)
Quarter: 2014Q1

REPORT INFORMATION
  Report Type: Report from Study
  Country: LB (occurrence: LB)
  Receive Date: 20140306
  Receipt Date: 20140306
  Transmission Date: 20141002
  Serious: Yes (Death, Other)
  Sender: FDA-Public Use
  Company Number: PHHY2013LB155656

PATIENT
  Age: 79 Year
  Sex: Male

DRUGS (6)
  1. OMEPRAZOLE [Concomitant]
     Dosage: 20 MG, UNK
     Route: 048
  2. ACLASTA [Suspect]
     Indication: OSTEOPOROSIS
     Dosage: 5 MG, UNK
     Route: 042
     Dates: start: 20130218
  3. BURINEX [Concomitant]
     Dosage: 5 MG, UNK
     Route: 048
  4. DIOVAN [Concomitant]
     Dosage: 80 MG, UNK
     Route: 048
  5. ZYLORIC [Concomitant]
     Dosage: 300 MG, UNK
     Route: 048
  6. ASPICORE [Concomitant]
     Dosage: 1 DF, UNK
     Route: 048

REACTIONS (2)
  - Death [Fatal]
  - Cardiac arrest [Unknown]
